FAERS Safety Report 5584894-2 (Version None)
Quarter: 2008Q1

REPORT INFORMATION
  Report Type: 
  Country: None (occurrence: None)
  Receive Date: 20080104
  Receipt Date: 20071224
  Transmission Date: 20080703
  Serious: Yes (Hospitalization)
  Sender: FDA-Public Use
  Company Number: 2007SP024442

PATIENT
  Age: 52 Year
  Sex: Female

DRUGS (2)
  1. PEG-INTRON [Suspect]
     Indication: HEPATITIS C
     Dosage: SC
     Route: 058
     Dates: start: 20071002
  2. REBETOL [Concomitant]
     Indication: HEPATITIS C
     Dosage: PO
     Route: 048
     Dates: start: 20071002

REACTIONS (10)
  - ANOREXIA [None]
  - BACK PAIN [None]
  - BEDRIDDEN [None]
  - FATIGUE [None]
  - HEADACHE [None]
  - HYPOAESTHESIA [None]
  - PRODUCTIVE COUGH [None]
  - PULMONARY THROMBOSIS [None]
  - VOMITING [None]
  - WHEEZING [None]
